FAERS Safety Report 9607361 (Version 1)
Quarter: 2013Q4

REPORT INFORMATION
  Report Type: Spontaneous
  Country: US (occurrence: None)
  Receive Date: 20131007
  Receipt Date: 20131007
  Transmission Date: 20140711
  Serious: Yes (Disabling, Other)
  Sender: FDA-Public Use
  Company Number: None

PATIENT
  Age: 32 Year
  Sex: Female
  Weight: 50.8 kg

DRUGS (1)
  1. MIRENA IUD [Suspect]

REACTIONS (2)
  - Ovarian cyst [None]
  - Ovarian cyst ruptured [None]
